FAERS Safety Report 9261601 (Version 1)
Quarter: 2013Q2

REPORT INFORMATION
  Report Type: Spontaneous
  Country: FR (occurrence: FR)
  Receive Date: 20130429
  Receipt Date: 20130429
  Transmission Date: 20140414
  Serious: Yes (Hospitalization, Disabling, Other)
  Sender: FDA-Public Use
  Company Number: FR-PFIZER INC-2013129231

PATIENT
  Age: 73 Year
  Sex: 0
  Weight: 74 kg

DRUGS (10)
  1. XANAX [Suspect]
     Dosage: UNK
     Route: 048
     Dates: start: 20100616
  2. XANAX [Suspect]
     Dosage: UNK
     Route: 048
     Dates: start: 2011
  3. ZOLPIDEM TARTRATE [Suspect]
     Dosage: UNK
     Route: 048
     Dates: start: 2011
  4. XAGRID [Suspect]
     Dosage: 0.5 MG, 1X/DAY
     Route: 048
     Dates: start: 20081002, end: 201103
  5. XAGRID [Suspect]
     Dosage: UNK
     Dates: end: 2013
  6. DEROXAT [Suspect]
     Dosage: UNK
     Route: 048
     Dates: start: 20100616
  7. DEROXAT [Suspect]
     Dosage: UNK
     Route: 048
     Dates: start: 2011, end: 2012
  8. ALLOPURINOL [Suspect]
     Indication: GOUT
     Dosage: UNK
     Route: 048
     Dates: start: 20100616
  9. ALLOPURINOL [Suspect]
     Dosage: UNK
     Route: 048
     Dates: start: 2010
  10. KARDEGIC [Suspect]
     Dosage: UNK
     Route: 048
     Dates: start: 2010

REACTIONS (9)
  - Pulmonary arterial hypertension [Recovering/Resolving]
  - Dyspnoea exertional [Recovering/Resolving]
  - Oedema peripheral [Recovered/Resolved]
  - Brain natriuretic peptide abnormal [Unknown]
  - Cardiomegaly [Unknown]
  - Ejection fraction decreased [Unknown]
  - Cardiac septal defect [Unknown]
  - Emphysema [Unknown]
  - Lung disorder [Unknown]
